FAERS Safety Report 14352829 (Version 2)
Quarter: 2018Q1

REPORT INFORMATION
  Report Type: Spontaneous
  Country: US (occurrence: US)
  Receive Date: 20180104
  Receipt Date: 20180314
  Transmission Date: 20180509
  Serious: No
  Sender: FDA-Public Use
  Company Number: US-PFIZER INC-2017547056

PATIENT
  Age: 64 Year
  Sex: Female

DRUGS (20)
  1. VITAMIN D3 [Concomitant]
     Active Substance: CHOLECALCIFEROL
     Dosage: 1000 IU, DAILY
     Route: 048
  2. LACTOBACILLUS RHAMNOSUS [Concomitant]
     Active Substance: LACTOBACILLUS RHAMNOSUS
     Dosage: UNK [5 BILLION CELL PWPK]
     Route: 048
  3. RESTORIL [Concomitant]
     Active Substance: TEMAZEPAM
     Dosage: 15 MG, AS NEEDED [NIGHTLY]
     Route: 048
  4. ESTRING [Suspect]
     Active Substance: ESTRADIOL
     Dosage: 2 MG, EVERY 3 MONTHS [(7.5 MCG /24 HOUR)]
     Route: 067
     Dates: start: 2009
  5. KLONOPIN [Concomitant]
     Active Substance: CLONAZEPAM
     Dosage: 0.5 MG, AS NEEDED [3 (THREE) TIMES A DAY]
     Route: 048
  6. PREVIDENT [Concomitant]
     Active Substance: SODIUM FLUORIDE
     Indication: DRY MOUTH
     Dosage: UNK, 1X/DAY [USE AT BEDTIME AS DIRECTED]
  7. EVISTA [Concomitant]
     Active Substance: RALOXIFENE HYDROCHLORIDE
     Dosage: 60 MG, DAILY
     Route: 048
  8. ZOCOR [Concomitant]
     Active Substance: SIMVASTATIN
     Dosage: 20 MG, 1X/DAY [NIGHTLY]
     Route: 048
  9. DITROPAN [Concomitant]
     Active Substance: OXYBUTYNIN CHLORIDE
     Dosage: 10 MG, DAILY (24 HR TABLET)
     Route: 048
  10. COMPAZINE [Concomitant]
     Active Substance: PROCHLORPERAZINE MALEATE
     Dosage: 10 MG, AS NEEDED [EVERY 6 (SIX) HOURS]
     Route: 048
  11. ASPIRIN. [Concomitant]
     Active Substance: ASPIRIN
     Dosage: 81 MG, DAILY
     Route: 048
  12. PRINIVIL [Concomitant]
     Active Substance: LISINOPRIL
     Dosage: 10 MG, DAILY
     Route: 048
  13. OSCAL [Concomitant]
     Active Substance: CALCIUM CARBONATE
     Dosage: UNK [CALCIUM CARBONATE 500 MG CALCIUM (1,250 MG)]
     Route: 048
  14. THERAGRAN [Concomitant]
     Active Substance: VITAMINS
     Dosage: 1 DF, DAILY
     Route: 048
  15. GLYCOLAX [Concomitant]
     Active Substance: POLYETHYLENE GLYCOL 3350
     Indication: CONSTIPATION
     Dosage: 17 G, AS NEEDED [DAILY]
     Route: 048
  16. PROBIOTIC [Concomitant]
     Active Substance: PROBIOTICS NOS
     Dosage: UNK UNK, DAILY
     Route: 048
  17. ULTRAM [Concomitant]
     Active Substance: TRAMADOL HYDROCHLORIDE
     Indication: BREAST SARCOMA
     Dosage: 50 MG, 2X/DAY
     Route: 048
  18. ZESTRIL [Concomitant]
     Active Substance: LISINOPRIL
     Dosage: 10 MG, DAILY
     Route: 048
  19. ZOVIRAX [Concomitant]
     Active Substance: ACYCLOVIR
     Dosage: UNK [EVERY 3 (THREE) HOURS]
     Route: 061
  20. TOPICORT [Concomitant]
     Active Substance: DESOXIMETASONE
     Dosage: UNK, DAILY [APPLY 1 APPLICATION TOPICALLY DAILY. FOR FIRST 10 DAYS OF THE MONTH]
     Route: 061

REACTIONS (2)
  - Sinusitis [Unknown]
  - Malaise [Unknown]
